FAERS Safety Report 4837032-5 (Version None)
Quarter: 2005Q4

REPORT INFORMATION
  Report Type: 
  Country: None (occurrence: None)
  Receive Date: 20051124
  Receipt Date: 20051012
  Transmission Date: 20060501
  Serious: Yes (Death, Other)
  Sender: FDA-Public Use
  Company Number: ZA-BOEHRINGER INGELHEIM PHARMACEUTICALS, INC.-2005-DE-04228GD

PATIENT

DRUGS (2)
  1. NEVIRAPINE [Suspect]
     Indication: PROPHYLAXIS AGAINST HIV INFECTION
     Dosage: 2 MG/KG
     Route: 048
  2. NEVIRAPINE [Suspect]
     Indication: HUMAN IMMUNODEFICIENCY VIRUS TRANSMISSION

REACTIONS (8)
  - DEATH [None]
  - GASTROENTERITIS [None]
  - HIV INFECTION [None]
  - INFECTION [None]
  - JAUNDICE NEONATAL [None]
  - NEONATAL DISORDER [None]
  - PNEUMONIA [None]
  - SEPSIS [None]
